FAERS Safety Report 12531151 (Version 1)
Quarter: 2016Q3

REPORT INFORMATION
  Report Type: Spontaneous
  Country: AU (occurrence: AU)
  Receive Date: 20160706
  Receipt Date: 20160706
  Transmission Date: 20161109
  Serious: Yes (Other)
  Sender: FDA-Public Use
  Company Number: AU-TOLMAR, INC.-2016AU005965

PATIENT
  Age: 73 Year
  Sex: Male

DRUGS (3)
  1. ELIGARD [Suspect]
     Active Substance: LEUPROLIDE ACETATE
     Indication: PROSTATE CANCER
     Dosage: 6 MONTHLY
     Route: 065
     Dates: start: 20160212
  2. ESOMEPRAZOLE ACTAVIS [Concomitant]
     Active Substance: ESOMEPRAZOLE
     Dosage: 20 MG, DAILY
  3. ATORVASTATIN [Suspect]
     Active Substance: ATORVASTATIN
     Dosage: 80 MG, UNK

REACTIONS (1)
  - Rash generalised [Recovering/Resolving]

NARRATIVE: CASE EVENT DATE: 20160212
